FAERS Safety Report 9680153 (Version 1)
Quarter: 2013Q4

REPORT INFORMATION
  Report Type: Spontaneous
  Country: JP (occurrence: JP)
  Receive Date: 20131111
  Receipt Date: 20131111
  Transmission Date: 20140711
  Serious: Yes (Hospitalization)
  Sender: FDA-Public Use
  Company Number: JP-BIOGENIDEC-2013BI107615

PATIENT
  Age: 45 Year
  Sex: Female

DRUGS (1)
  1. AVONEX [Suspect]
     Indication: MULTIPLE SCLEROSIS
     Route: 030
     Dates: start: 20130726, end: 20130802

REACTIONS (3)
  - Dyslalia [Not Recovered/Not Resolved]
  - VIIth nerve paralysis [Recovered/Resolved]
  - Multiple sclerosis relapse [Recovered/Resolved]
